FAERS Safety Report 4901598-7 (Version None)
Quarter: 2006Q1

REPORT INFORMATION
  Report Type: 
  Country: None (occurrence: None)
  Receive Date: 20060206
  Receipt Date: 20050519
  Transmission Date: 20060701
  Serious: No
  Sender: FDA-Public Use
  Company Number: US-BRISTOL-MYERS SQUIBB COMPANY-12974895

PATIENT
  Sex: Female

DRUGS (6)
  1. TAXOL [Suspect]
     Indication: OVARIAN CANCER
     Route: 042
     Dates: start: 20050401
  2. PARAPLATIN [Suspect]
     Indication: OVARIAN CANCER
     Route: 042
  3. AVANDIA [Concomitant]
  4. BENADRYL [Concomitant]
     Indication: PREMEDICATION
     Route: 042
  5. DEXAMETHASONE TAB [Concomitant]
     Indication: PREMEDICATION
     Route: 042
  6. CIMETIDINE [Concomitant]
     Indication: PREMEDICATION
     Route: 042

REACTIONS (1)
  - RASH [None]
